FAERS Safety Report 9925357 (Version 1)
Quarter: 2014Q1

REPORT INFORMATION
  Report Type: Spontaneous
  Country: AU (occurrence: AU)
  Receive Date: 20140226
  Receipt Date: 20140226
  Transmission Date: 20141002
  Serious: Yes (Other)
  Sender: FDA-Public Use
  Company Number: AU-PFIZER INC-2014053022

PATIENT
  Age: 26 Year
  Sex: Female

DRUGS (1)
  1. LYRICA [Suspect]
     Indication: AFFECTIVE DISORDER
     Dosage: 75 MG, NIGHTLY

REACTIONS (3)
  - Off label use [Unknown]
  - Weight increased [Recovered/Resolved]
  - Affective disorder [Unknown]
